FAERS Safety Report 8959908 (Version 2)
Quarter: 2013Q1

REPORT INFORMATION
  Report Type: Spontaneous
  Country: US (occurrence: US)
  Receive Date: 20121212
  Receipt Date: 20130117
  Transmission Date: 20140127
  Serious: No
  Sender: FDA-Public Use
  Company Number: US-009507513-1212USA004640

PATIENT
  Age: 73 Year
  Sex: Female
  Weight: 53.52 kg

DRUGS (13)
  1. CLARITIN-D 24 HOUR [Suspect]
     Indication: NASOPHARYNGITIS
     Dosage: 10 MG, ONCE
     Route: 048
     Dates: start: 20121205
  2. CLARITIN-D 24 HOUR [Suspect]
     Indication: RESPIRATORY TRACT CONGESTION
  3. CLARITIN-D 24 HOUR [Suspect]
     Indication: UPPER RESPIRATORY TRACT INFECTION
  4. CLARITIN-D 24 HOUR [Suspect]
     Indication: MEDICAL OBSERVATION
  5. LISINOPRIL [Concomitant]
     Indication: HYPERTENSION
     Dosage: UNK, UNKNOWN
  6. METOPROLOL TARTRATE [Concomitant]
     Indication: HYPERTENSION
     Dosage: UNK, UNKNOWN
  7. AMLODIPINE BESYLATE [Concomitant]
     Indication: PRODUCT USED FOR UNKNOWN INDICATION
     Dosage: UNK, UNKNOWN
  8. LEVOTHYROXINE SODIUM [Concomitant]
     Indication: HYPOTHYROIDISM
     Dosage: UNK, UNKNOWN
  9. DOXEPIN HYDROCHLORIDE [Concomitant]
     Indication: INSOMNIA
     Dosage: UNK, UNKNOWN
  10. GABAPENTIN [Concomitant]
     Indication: INSOMNIA
     Dosage: UNK, UNKNOWN
  11. CLONAZEPAM [Concomitant]
     Indication: INSOMNIA
     Dosage: UNK, UNKNOWN
  12. MELATONIN [Concomitant]
     Indication: INSOMNIA
     Dosage: UNK, UNKNOWN
  13. ALENDRONATE SODIUM [Concomitant]
     Indication: BONE DENSITY DECREASED

REACTIONS (1)
  - Insomnia [Recovered/Resolved]
